FAERS Safety Report 18930047 (Version 9)
Quarter: 2024Q2

REPORT INFORMATION
  Report Type: Spontaneous
  Country: US (occurrence: US)
  Receive Date: 20210223
  Receipt Date: 20240429
  Transmission Date: 20240715
  Serious: Yes (Hospitalization, Other)
  Sender: FDA-Public Use
  Company Number: US-PFIZER INC-2021149119

PATIENT
  Age: 56 Year
  Sex: Female
  Weight: 68.49 kg

DRUGS (4)
  1. SOMAVERT [Suspect]
     Active Substance: PEGVISOMANT
     Indication: Acromegaly
     Dosage: 20 MILLIGRAM, ONCE A DAY
     Route: 058
     Dates: start: 20210220
  2. SOMAVERT [Suspect]
     Active Substance: PEGVISOMANT
     Indication: Pituitary enlargement
     Dosage: 20 MG, ONCE A DAY
     Route: 058
     Dates: start: 2021
  3. SIGNIFOR LAR [Concomitant]
     Active Substance: PASIREOTIDE PAMOATE
     Indication: Acromegaly
     Dosage: 60 MG, MONTHLY
  4. DILTIAZEM [Concomitant]
     Active Substance: DILTIAZEM
     Indication: Hypertension
     Dosage: 120 MG

REACTIONS (7)
  - Corneal disorder [Unknown]
  - Renal cyst [Recovered/Resolved]
  - Ovarian cyst [Recovered/Resolved]
  - Hernia [Unknown]
  - Drug ineffective [Not Recovered/Not Resolved]
  - Thyroid cyst [Unknown]
  - Vision blurred [Unknown]

NARRATIVE: CASE EVENT DATE: 20210201
